FAERS Safety Report 7433077-X (Version None)
Quarter: 2011Q2

REPORT INFORMATION
  Report Type: 
  Country: None (occurrence: None)
  Receive Date: 20110422
  Receipt Date: 20110418
  Transmission Date: 20111010
  Serious: Yes (Other)
  Sender: FDA-Public Use
  Company Number: US-AMGEN-USASP2011017238

PATIENT
  Age: 50 Year
  Sex: Female
  Weight: 76.009 kg

DRUGS (16)
  1. TRAMADOL HCL [Concomitant]
     Dosage: 50 MG, UNK
  2. ANTIBIOTICS [Concomitant]
     Dosage: UNK UNK, TID
  3. CLARITIN-D [Concomitant]
     Dosage: UNK UNK, PRN
  4. PREDNISONE [Concomitant]
     Dosage: UNK UNK, QD
     Route: 048
     Dates: start: 20100302, end: 20100823
  5. ALLERGY MEDICATION [Concomitant]
     Dosage: UNK UNK, PRN
  6. B COMPLEX                          /00212701/ [Concomitant]
     Dosage: UNK UNK, QD
     Route: 048
  7. PRENATAL VITAMINS                  /01549301/ [Concomitant]
     Dosage: UNK UNK, QD
     Route: 048
  8. VALIUM [Concomitant]
     Dosage: UNK UNK, PRN
  9. CORTICOSTEROIDS [Concomitant]
  10. PROVENTIL                          /00139501/ [Concomitant]
     Dosage: UNK UNK, PRN
     Route: 055
  11. COMPAZINE [Concomitant]
  12. LORTAB [Concomitant]
     Dosage: UNK UNK, PRN
  13. CIPRO                              /00042702/ [Concomitant]
     Dosage: UNK UNK, BID
  14. NPLATE [Suspect]
     Indication: IDIOPATHIC THROMBOCYTOPENIC PURPURA
     Dosage: 100 A?G, UNK
     Dates: start: 20100322, end: 20101012
  15. IBUPROFEN [Concomitant]
     Dosage: UNK UNK, PRN
  16. VITAMIN C                          /00008001/ [Concomitant]
     Dosage: UNK UNK, QD

REACTIONS (2)
  - DRUG EFFECT DECREASED [None]
  - LEUKOCYTOSIS [None]
